FAERS Safety Report 5753466-9 (Version None)
Quarter: 2008Q2

REPORT INFORMATION
  Report Type: 
  Country: None (occurrence: None)
  Receive Date: 20080527
  Receipt Date: 20080515
  Transmission Date: 20081010
  Serious: Yes (Hospitalization, Other)
  Sender: FDA-Public Use
  Company Number: 2007US002739

PATIENT
  Age: 60 Year
  Sex: Female
  Weight: 102 kg

DRUGS (19)
  1. AMEVIVE [Suspect]
     Indication: PSORIASIS
     Dosage: 15 MG, WEEKLY, INTRAMUSCULAR
     Route: 030
     Dates: start: 20041014, end: 20041230
  2. SORIATANE [Concomitant]
  3. MONOPRIL [Concomitant]
  4. GLUCOPHAGE XR (METFORMIN HYDROCHLORIDE) [Concomitant]
  5. ADVAIR DISKUS 100/50 [Concomitant]
  6. TOPROL XL (METORPOLOL SUCCINATE) [Concomitant]
  7. ASTELIN [Concomitant]
  8. HUMALOG [Concomitant]
  9. ALBUTEROL (SALBUTAMOL SULFATE) [Concomitant]
  10. ASPIRIN [Concomitant]
  11. LEVOXYL [Concomitant]
  12. PROTONIX [Concomitant]
  13. CRESTOR [Concomitant]
  14. TRICOR [Concomitant]
  15. FISH OIL (FISH OIL) [Concomitant]
  16. LANTUS [Concomitant]
  17. FERRO-SEQUELS (FERROUS FUMARATE, DOCUSATE SODIUM) [Concomitant]
  18. SINGULAIR [Concomitant]
  19. PLAVIX [Concomitant]

REACTIONS (6)
  - ANAEMIA [None]
  - BLOOD GLUCOSE INCREASED [None]
  - BLOOD POTASSIUM INCREASED [None]
  - COLON CANCER STAGE III [None]
  - LYMPHADENOPATHY [None]
  - POSTOPERATIVE ILEUS [None]
